FAERS Safety Report 13640322 (Version 2)
Quarter: 2017Q3

REPORT INFORMATION
  Report Type: Spontaneous
  Country: FR (occurrence: FR)
  Receive Date: 20170610
  Receipt Date: 20170703
  Transmission Date: 20171127
  Serious: Yes (Death, Other)
  Sender: FDA-Public Use
  Company Number: FR-BRISTOL-MYERS SQUIBB COMPANY-BMS-2017-048104

PATIENT
  Age: 75 Year
  Sex: Female

DRUGS (1)
  1. COUMADINE [Suspect]
     Active Substance: WARFARIN SODIUM
     Indication: PRODUCT USED FOR UNKNOWN INDICATION
     Dosage: UNK
     Route: 065
     Dates: end: 20170513

REACTIONS (5)
  - Hydrocephalus [Unknown]
  - Aneurysm ruptured [Fatal]
  - Cerebral haemorrhage [Fatal]
  - Meningorrhagia [Unknown]
  - Coma [Unknown]

NARRATIVE: CASE EVENT DATE: 20170514
